FAERS Safety Report 5497267-8 (Version None)
Quarter: 2007Q4

REPORT INFORMATION
  Report Type: 
  Country: None (occurrence: None)
  Receive Date: 20071023
  Receipt Date: 20071010
  Transmission Date: 20080405
  Serious: Yes (Life-Threatening, Other)
  Sender: FDA-Public Use
  Company Number: US018909

PATIENT
  Age: 27 Year
  Sex: Female

DRUGS (9)
  1. TRISENOX [Suspect]
     Indication: ACUTE PROMYELOCYTIC LEUKAEMIA
     Dosage: 7.8 MG QD INTRAVENOUS DRIP
     Route: 041
     Dates: start: 20061102, end: 20061112
  2. TRISENOX [Suspect]
     Indication: ACUTE PROMYELOCYTIC LEUKAEMIA
     Dosage: 7.8 MG QD INTRAVENOUS DRIP
     Route: 041
     Dates: start: 20061222, end: 20070104
  3. ELECTROLYTE [Suspect]
     Indication: ELECTROLYTE SUBSTITUTION THERAPY
     Dosage: INTRAVENOUS DRIP
     Route: 041
  4. IDARUBICIN HCL [Concomitant]
  5. PANIPENEM/BETAMIPRON [Concomitant]
  6. AMIKACIN SULFATE [Concomitant]
  7. MICAFUNGIN SODIUM [Concomitant]
  8. ABREKACIN SULFATE [Concomitant]
  9. MEROPENEM HYDRATE [Concomitant]

REACTIONS (13)
  - ACUTE PROMYELOCYTIC LEUKAEMIA DIFFERENTIATION SYNDROME [None]
  - ALANINE AMINOTRANSFERASE INCREASED [None]
  - ASPARTATE AMINOTRANSFERASE INCREASED [None]
  - ELECTROCARDIOGRAM QT PROLONGED [None]
  - HAEMOGLOBIN DECREASED [None]
  - HEPATIC FUNCTION ABNORMAL [None]
  - HYPOKALAEMIA [None]
  - LEUKOCYTOSIS [None]
  - PLATELET COUNT DECREASED [None]
  - PNEUMONIA [None]
  - RENAL IMPAIRMENT [None]
  - VENTRICULAR EXTRASYSTOLES [None]
  - WHITE BLOOD CELL COUNT DECREASED [None]
